APPROVED DRUG PRODUCT: AZTREONAM
Active Ingredient: AZTREONAM
Strength: 2GM/VIAL
Dosage Form/Route: INJECTABLE;INJECTION
Application: A207069 | Product #002 | TE Code: AP
Applicant: HIKMA PHARMACEUTICALS USA INC
Approved: Feb 5, 2026 | RLD: No | RS: No | Type: RX